FAERS Safety Report 10233239 (Version 1)
Quarter: 2014Q2

REPORT INFORMATION
  Report Type: Spontaneous
  Country: US (occurrence: US)
  Receive Date: 20140612
  Receipt Date: 20140612
  Transmission Date: 20141212
  Serious: Yes (Other)
  Sender: FDA-Public Use
  Company Number: US-ACTAVIS-2014-11889

PATIENT
  Age: 75 Year
  Sex: Female

DRUGS (2)
  1. ALENDRONATE SODIUM (WATSON LABORATORIES) [Suspect]
     Indication: OSTEOPOROSIS
     Dosage: UNKNOWN
     Route: 065
  2. ZOLEDRONIC ACID (ACTAVIS LLC) [Suspect]
     Indication: OSTEOPOROSIS
     Dosage: UNKNOWN
     Route: 042

REACTIONS (2)
  - Atypical femur fracture [Unknown]
  - Stress fracture [None]
